FAERS Safety Report 19985951 (Version 2)
Quarter: 2021Q4

REPORT INFORMATION
  Report Type: Spontaneous
  Country: ES (occurrence: ES)
  Receive Date: 20211022
  Receipt Date: 20211231
  Transmission Date: 20220303
  Serious: Yes (Hospitalization, Other)
  Sender: FDA-Public Use
  Company Number: ES-LUPIN PHARMACEUTICALS INC.-2021-20079

PATIENT
  Age: 26 Year
  Sex: Female

DRUGS (18)
  1. AZACITIDINE [Suspect]
     Active Substance: AZACITIDINE
     Indication: Acute myeloid leukaemia
     Dosage: 75 MILLIGRAM/SQ. METER; (DAYS 1-7 OF EACH 28-DAY CYCLE)
     Route: 065
     Dates: start: 202007
  2. AZACITIDINE [Suspect]
     Active Substance: AZACITIDINE
     Indication: Leukaemia recurrent
     Dosage: 75 MILLIGRAM/SQ. METER; TWO CYCLES
     Route: 065
     Dates: start: 202011
  3. AZACITIDINE [Suspect]
     Active Substance: AZACITIDINE
     Dosage: UNK, THIRD CYCLE
     Route: 065
     Dates: start: 2021
  4. VENETOCLAX [Suspect]
     Active Substance: VENETOCLAX
     Indication: Acute myeloid leukaemia
     Dosage: 100 MILLIGRAM, QD (UP TITRATED TO 400MG)
     Route: 065
     Dates: start: 202010
  5. VENETOCLAX [Suspect]
     Active Substance: VENETOCLAX
     Indication: Leukaemia recurrent
     Dosage: UNK, (TWO CYCLES)
     Route: 065
     Dates: start: 202011
  6. VENETOCLAX [Suspect]
     Active Substance: VENETOCLAX
     Dosage: 50 MILLIGRAM; (THIRD CYCLE: DOSE UP TITRATED TO 70MG)
     Route: 065
     Dates: start: 2021
  7. VENETOCLAX [Suspect]
     Active Substance: VENETOCLAX
     Dosage: 100 MILLIGRAM, QD (NEXT CYCLE)
     Route: 065
     Dates: start: 2021
  8. FILGRASTIM [Concomitant]
     Active Substance: FILGRASTIM
     Indication: Acute myeloid leukaemia
     Dosage: UNK
     Route: 065
  9. FILGRASTIM [Concomitant]
     Active Substance: FILGRASTIM
     Indication: Leukaemia recurrent
  10. FLUDARABINE [Concomitant]
     Active Substance: FLUDARABINE PHOSPHATE
     Indication: Acute myeloid leukaemia
     Dosage: UNK
     Route: 065
  11. FLUDARABINE [Concomitant]
     Active Substance: FLUDARABINE PHOSPHATE
     Indication: Leukaemia recurrent
  12. CYTARABINE [Concomitant]
     Active Substance: CYTARABINE
     Indication: Acute myeloid leukaemia
     Dosage: UNK
     Route: 065
  13. CYTARABINE [Concomitant]
     Active Substance: CYTARABINE
     Indication: Leukaemia recurrent
     Dosage: UNK, HIGH DOSE
     Route: 065
  14. IDARUBICIN [Concomitant]
     Active Substance: IDARUBICIN
     Indication: Acute myeloid leukaemia
     Dosage: UNK
     Route: 065
  15. IDARUBICIN [Concomitant]
     Active Substance: IDARUBICIN
     Indication: Leukaemia recurrent
  16. QUIZARTINIB [Concomitant]
     Active Substance: QUIZARTINIB
     Indication: Acute myeloid leukaemia
     Dosage: 40 MILLIGRAM
     Route: 065
  17. QUIZARTINIB [Concomitant]
     Active Substance: QUIZARTINIB
     Indication: Leukaemia recurrent
  18. POSACONAZOLE [Concomitant]
     Active Substance: POSACONAZOLE
     Indication: Antifungal prophylaxis
     Dosage: UNK
     Route: 065

REACTIONS (6)
  - Febrile neutropenia [Unknown]
  - Paronychia [Unknown]
  - Localised infection [Unknown]
  - Asthenia [Unknown]
  - Myelosuppression [Unknown]
  - Drug ineffective [Unknown]
